FAERS Safety Report 9613622 (Version 1)
Quarter: 2013Q4

REPORT INFORMATION
  Report Type: Spontaneous
  Country: GR (occurrence: None)
  Receive Date: 20131008
  Receipt Date: 20131008
  Transmission Date: 20140711
  Serious: Yes (Disabling)
  Sender: FDA-Public Use
  Company Number: 2013P1019734

PATIENT
  Age: 52 Year
  Sex: Male

DRUGS (1)
  1. GENTAMICIN [Suspect]
     Indication: ENDOPHTHALMITIS
     Route: 057

REACTIONS (5)
  - Retinal oedema [None]
  - Retinal haemorrhage [None]
  - Retinal exudates [None]
  - Visual field defect [None]
  - Retinal toxicity [None]
